FAERS Safety Report 20155068 (Version 1)
Quarter: 2021Q4

REPORT INFORMATION
  Report Type: Spontaneous
  Country: TW (occurrence: TW)
  Receive Date: 20211207
  Receipt Date: 20211207
  Transmission Date: 20220303
  Serious: Yes (Other)
  Sender: FDA-Public Use
  Company Number: TW-NOVARTISPH-NVSC2021TW273531

PATIENT
  Sex: Male

DRUGS (3)
  1. AFINITOR [Suspect]
     Active Substance: EVEROLIMUS
     Indication: Product used for unknown indication
     Dosage: UNK
     Route: 065
     Dates: start: 202002
  2. SUTENT [Concomitant]
     Active Substance: SUNITINIB MALATE
     Indication: Product used for unknown indication
     Dosage: UNK
     Route: 065
     Dates: start: 20200810, end: 20201118
  3. PALBOCICLIB [Concomitant]
     Active Substance: PALBOCICLIB
     Indication: Product used for unknown indication
     Dosage: UNK
     Route: 065
     Dates: start: 20210221, end: 20211129

REACTIONS (1)
  - Metastases to the mediastinum [Unknown]

NARRATIVE: CASE EVENT DATE: 20200401
